FAERS Safety Report 9364634 (Version 4)
Quarter: 2013Q4

REPORT INFORMATION
  Report Type: Spontaneous
  Country: BE (occurrence: BE)
  Receive Date: 20130624
  Receipt Date: 20131028
  Transmission Date: 20140711
  Serious: Yes (Death, Hospitalization)
  Sender: FDA-Public Use
  Company Number: BE-BRISTOL-MYERS SQUIBB COMPANY-19011436

PATIENT
  Age: 48 Year
  Sex: Male

DRUGS (11)
  1. ORENCIA [Suspect]
     Indication: POLYARTHRITIS
     Dosage: INTERUPPTED ON:01-MAY-13.
     Route: 042
     Dates: start: 20110301
  2. MEDROL [Concomitant]
  3. TAZOCIN [Concomitant]
  4. VANCOMYCIN [Concomitant]
  5. PARACETAMOL [Concomitant]
  6. NOVONORM [Concomitant]
  7. CORUNO [Concomitant]
  8. TILDIEM [Concomitant]
  9. PANTOMED [Concomitant]
  10. ASAFLOW [Concomitant]
  11. CLEXANE [Concomitant]

REACTIONS (4)
  - Pancreatitis [Fatal]
  - Musculoskeletal pain [Unknown]
  - Furuncle [Unknown]
  - Hidradenitis [Unknown]
